FAERS Safety Report 14629378 (Version 1)
Quarter: 2018Q1

REPORT INFORMATION
  Report Type: Spontaneous
  Country: US (occurrence: US)
  Receive Date: 20180313
  Receipt Date: 20180313
  Transmission Date: 20180509
  Serious: Yes (Hospitalization, Other)
  Sender: FDA-Public Use
  Company Number: US-TORRENT-00002582

PATIENT
  Age: 51 Year
  Sex: Female

DRUGS (1)
  1. PANTOPRAZOLE SODIUM. [Suspect]
     Active Substance: PANTOPRAZOLE SODIUM
     Indication: PRODUCT USED FOR UNKNOWN INDICATION
     Dosage: ONCE A DAY

REACTIONS (3)
  - Dermatitis atopic [Not Recovered/Not Resolved]
  - Hypersensitivity [Unknown]
  - Rash pruritic [Not Recovered/Not Resolved]
